FAERS Safety Report 5980469-1 (Version None)
Quarter: 2008Q4

REPORT INFORMATION
  Report Type: 
  Country: None (occurrence: None)
  Receive Date: 20081205
  Receipt Date: 20071227
  Transmission Date: 20090506
  Serious: No
  Sender: FDA-Public Use
  Company Number: A0700549A

PATIENT
  Age: 54 Year
  Sex: Male

DRUGS (2)
  1. COMMIT [Suspect]
  2. NICODERM CQ [Suspect]

REACTIONS (4)
  - APPLICATION SITE RASH [None]
  - DYSGEUSIA [None]
  - FEELING ABNORMAL [None]
  - VOMITING [None]
